FAERS Safety Report 18595237 (Version 1)
Quarter: 2020Q4

REPORT INFORMATION
  Report Type: Spontaneous
  Country: SK (occurrence: SK)
  Receive Date: 20201209
  Receipt Date: 20201209
  Transmission Date: 20210114
  Serious: Yes (Other)
  Sender: FDA-Public Use
  Company Number: SK-AMGEN-SVKSP2020197546

PATIENT
  Sex: Male

DRUGS (5)
  1. DIPROPHOS [Concomitant]
     Active Substance: BETAMETHASONE DIPROPIONATE\BETAMETHASONE SODIUM PHOSPHATE
     Dosage: UNK
     Route: 065
     Dates: start: 202006
  2. DIPROPHOS [Concomitant]
     Active Substance: BETAMETHASONE DIPROPIONATE\BETAMETHASONE SODIUM PHOSPHATE
     Dosage: UNK
     Route: 065
     Dates: start: 201812
  3. ADALIMUMAB [Suspect]
     Active Substance: ADALIMUMAB
     Indication: RHEUMATOID ARTHRITIS
     Dosage: UNK
     Route: 058
     Dates: start: 2019
  4. DIPROPHOS [Concomitant]
     Active Substance: BETAMETHASONE DIPROPIONATE\BETAMETHASONE SODIUM PHOSPHATE
     Indication: RHEUMATOID ARTHRITIS
     Dosage: UNK
     Route: 065
     Dates: start: 201708
  5. DIPROPHOS [Concomitant]
     Active Substance: BETAMETHASONE DIPROPIONATE\BETAMETHASONE SODIUM PHOSPHATE
     Dosage: UNK
     Route: 065
     Dates: start: 201902

REACTIONS (1)
  - Rheumatoid arthritis [Unknown]
